FAERS Safety Report 7300797-7 (Version None)
Quarter: 2011Q1

REPORT INFORMATION
  Report Type: 
  Country: None (occurrence: None)
  Receive Date: 20110218
  Receipt Date: 20110210
  Transmission Date: 20110831
  Serious: Yes (Other)
  Sender: FDA-Public Use
  Company Number: JP-ASTELLAS-2011JP001074

PATIENT
  Age: 65 Year

DRUGS (3)
  1. PREDNISOLONE [Concomitant]
     Route: 065
  2. PROGRAF [Suspect]
     Dosage: UNK
     Route: 065
  3. MYCOPHENOLATE MOFETIL [Concomitant]
     Route: 065

REACTIONS (3)
  - KIDNEY TRANSPLANT REJECTION [None]
  - NEPHRITIS [None]
  - DRUG INEFFECTIVE [None]
